FAERS Safety Report 6507139-5 (Version None)
Quarter: 2009Q4

REPORT INFORMATION
  Report Type: 
  Country: None (occurrence: None)
  Receive Date: 20091221
  Receipt Date: 20091210
  Transmission Date: 20100525
  Serious: Yes (Other)
  Sender: FDA-Public Use
  Company Number: PHHY2009NL54694

PATIENT
  Sex: Male

DRUGS (1)
  1. VALSARTAN [Suspect]
     Dosage: UNK
     Dates: start: 20090901

REACTIONS (2)
  - CONDITION AGGRAVATED [None]
  - CONJUNCTIVITIS [None]
